FAERS Safety Report 5533251-3 (Version None)
Quarter: 2007Q4

REPORT INFORMATION
  Report Type: 
  Country: None (occurrence: None)
  Receive Date: 20071204
  Receipt Date: 20071123
  Transmission Date: 20080405
  Serious: Yes (Death, Hospitalization)
  Sender: FDA-Public Use
  Company Number: B0469261A

PATIENT
  Age: 65 Year
  Sex: Male

DRUGS (14)
  1. FLOLAN [Suspect]
     Dosage: 16NGKM UNKNOWN
     Route: 042
     Dates: start: 20070117
  2. AVODART [Suspect]
     Dosage: .5MG PER DAY
     Route: 048
     Dates: start: 20070301, end: 20070413
  3. PREVISCAN [Suspect]
     Dosage: 20MG SINGLE DOSE
     Route: 048
     Dates: end: 20070413
  4. TAHOR [Suspect]
     Dosage: 10MG PER DAY
     Route: 048
  5. AMARYL [Suspect]
     Dosage: 4MG PER DAY
     Route: 048
  6. LASIX [Suspect]
     Dosage: 40MG PER DAY
     Route: 048
  7. XATRAL [Suspect]
     Dosage: 10MG PER DAY
     Route: 048
     Dates: start: 20070201, end: 20070413
  8. AUGMENTIN [Concomitant]
     Dates: start: 20070301, end: 20070301
  9. FONZYLANE [Concomitant]
     Dosage: 300MG PER DAY
     Route: 048
  10. XANAX [Concomitant]
     Route: 048
  11. SYMBICORT [Concomitant]
     Route: 025
  12. TOBREX [Concomitant]
     Dates: start: 20070411
  13. OXYGEN [Concomitant]
  14. CITALOPRAM HYDROBROMIDE [Concomitant]

REACTIONS (2)
  - RESPIRATORY DEPRESSION [None]
  - THROMBOCYTOPENIA [None]
